FAERS Safety Report 6244745-X (Version None)
Quarter: 2009Q2

REPORT INFORMATION
  Report Type: 
  Country: None (occurrence: None)
  Receive Date: 20090625
  Receipt Date: 20090617
  Transmission Date: 20091009
  Serious: Yes (Hospitalization)
  Sender: FDA-Public Use
  Company Number: US-GENENTECH-285240

PATIENT
  Sex: Male
  Weight: 71.3 kg

DRUGS (4)
  1. BEVACIZUMAB [Suspect]
     Indication: COLON CANCER
     Dosage: 5 MG, Q3W
     Route: 042
  2. FOLINIC ACID [Suspect]
     Indication: COLON CANCER
     Dosage: 200 MG/M2, ON DAY 1
     Route: 042
     Dates: start: 20050308
  3. FLUOROURACIL [Suspect]
     Indication: COLON CANCER
     Dosage: 2400 MG/M2, X46 HOURS
     Dates: start: 20050308
  4. ELOXATIN [Suspect]
     Indication: COLON CANCER
     Dosage: 70 MG/M2, DAY 1
     Route: 042

REACTIONS (1)
  - ENCEPHALOPATHY [None]
